FAERS Safety Report 5892592-0 (Version None)
Quarter: 2008Q3

REPORT INFORMATION
  Report Type: 
  Country: None (occurrence: None)
  Receive Date: 20080923
  Receipt Date: 20080912
  Transmission Date: 20090109
  Serious: Yes (Other)
  Sender: FDA-Public Use
  Company Number: US-BAYER-200813747BCC

PATIENT
  Sex: Female
  Weight: 73 kg

DRUGS (9)
  1. ASPIRIN [Suspect]
     Indication: INFLAMMATION
     Dosage: TOTAL DAILY DOSE: 650 MG  UNIT DOSE: 325 MG
     Route: 048
     Dates: start: 20040101
  2. TRILEPTAL [Concomitant]
  3. PREVACID [Concomitant]
  4. CELEBREX [Concomitant]
  5. ZOLOFT [Concomitant]
  6. SIMVASTATIN [Concomitant]
  7. DICYCLOMINE [Concomitant]
  8. VICODIN [Concomitant]
  9. TYLENOL (CAPLET) [Concomitant]

REACTIONS (2)
  - HAEMOPTYSIS [None]
  - OESOPHAGEAL PAIN [None]
